FAERS Safety Report 7884333-2 (Version None)
Quarter: 2011Q4

REPORT INFORMATION
  Report Type: 
  Country: None (occurrence: None)
  Receive Date: 20111102
  Receipt Date: 20111031
  Transmission Date: 20120403
  Serious: Yes (Other)
  Sender: FDA-Public Use
  Company Number: CA-ROCHE-1008468

PATIENT
  Sex: Female
  Weight: 64.922 kg

DRUGS (2)
  1. AVASTIN [Suspect]
     Indication: GLIOBLASTOMA
     Route: 042
     Dates: start: 20110325, end: 20111017
  2. KEPPRA [Concomitant]

REACTIONS (1)
  - CONVULSION [None]
